FAERS Safety Report 18539243 (Version 2)
Quarter: 2021Q1

REPORT INFORMATION
  Report Type: Report from Study
  Country: None (occurrence: US)
  Receive Date: 20201124
  Receipt Date: 20210129
  Transmission Date: 20210419
  Serious: Yes (Death, Other)
  Sender: FDA-Public Use
  Company Number: US-ABBVIE-20K-163-3663515-00

PATIENT
  Age: 79 Year
  Sex: Female
  Weight: 77.18 kg

DRUGS (2)
  1. CREON [Suspect]
     Active Substance: PANCRELIPASE AMYLASE\PANCRELIPASE LIPASE\PANCRELIPASE PROTEASE
     Indication: PANCREATIC CARCINOMA
     Route: 048
  2. CREON [Suspect]
     Active Substance: PANCRELIPASE AMYLASE\PANCRELIPASE LIPASE\PANCRELIPASE PROTEASE
     Dosage: 3 CAPSULES PER MEAL AND 2 CAPSULES PER SNACK ( 1 SNACK PER DAY)
     Route: 048
     Dates: start: 202004, end: 202006

REACTIONS (3)
  - Immune thrombocytopenia [Not Recovered/Not Resolved]
  - Pancreatic carcinoma [Fatal]
  - Pancreatic carcinoma metastatic [Fatal]

NARRATIVE: CASE EVENT DATE: 202004
